FAERS Safety Report 12100093 (Version 1)
Quarter: 2016Q1

REPORT INFORMATION
  Report Type: Report from Study
  Country: CA (occurrence: CA)
  Receive Date: 20160222
  Receipt Date: 20160222
  Transmission Date: 20160526
  Serious: Yes (Other)
  Sender: FDA-Public Use
  Company Number: CA-JNJFOC-20160212848

PATIENT
  Sex: Female
  Weight: 58.4 kg

DRUGS (1)
  1. REMICADE [Suspect]
     Active Substance: INFLIXIMAB
     Indication: CROHN^S DISEASE
     Route: 042
     Dates: start: 20120120

REACTIONS (2)
  - Diarrhoea [Not Recovered/Not Resolved]
  - Intestinal resection [Not Recovered/Not Resolved]
